FAERS Safety Report 6081399-X (Version None)
Quarter: 2009Q1

REPORT INFORMATION
  Report Type: 
  Country: None (occurrence: None)
  Receive Date: 20090218
  Receipt Date: 20090216
  Transmission Date: 20090719
  Serious: Yes (Hospitalization)
  Sender: FDA-Public Use
  Company Number: IE-BRISTOL-MYERS SQUIBB COMPANY-14507818

PATIENT
  Age: 8 Decade
  Sex: Male

DRUGS (2)
  1. ABILIFY [Suspect]
  2. CITALOPRAM HYDROBROMIDE [Concomitant]

REACTIONS (2)
  - BLOOD CALCIUM DECREASED [None]
  - SPEECH DISORDER [None]
